FAERS Safety Report 8826575 (Version 2)
Quarter: 2013Q2

REPORT INFORMATION
  Report Type: Spontaneous
  Country: US (occurrence: US)
  Receive Date: 20121005
  Receipt Date: 20130425
  Transmission Date: 20140414
  Serious: Yes (Other)
  Sender: FDA-Public Use
  Company Number: PHHY2012US085113

PATIENT
  Age: 33 Year
  Sex: Female

DRUGS (4)
  1. TRAMADOL [Suspect]
     Indication: NEURALGIA
     Dosage: 300 TO 400 MG/DAY
  2. TRAMADOL [Interacting]
     Dosage: 600 TO 800 MG/DAY IN ADDTION TO 400MG
  3. VENLAFAXINE [Interacting]
     Indication: DEPRESSION
     Dosage: 300 MG, PER DAY
  4. SERTRALINE [Interacting]
     Dosage: 50 MG, PER DAY

REACTIONS (9)
  - Epilepsy [Recovered/Resolved]
  - Convulsion [Recovered/Resolved]
  - Depression [Recovered/Resolved]
  - Insomnia [Unknown]
  - Restlessness [Unknown]
  - Neuralgia [Unknown]
  - Drug interaction [Unknown]
  - Drug abuse [Unknown]
  - Anhedonia [Unknown]
